FAERS Safety Report 8506760-2 (Version None)
Quarter: 2012Q3

REPORT INFORMATION
  Report Type: 
  Country: None (occurrence: None)
  Receive Date: 20120712
  Receipt Date: 20120709
  Transmission Date: 20120928
  Serious: No
  Sender: FDA-Public Use
  Company Number: US-PFIZER INC-2012164490

PATIENT
  Sex: Female
  Weight: 63.492 kg

DRUGS (7)
  1. CALCIUM [Concomitant]
     Dosage: UNK, DAILY
  2. VITAMIN E [Concomitant]
     Dosage: UNK, DAILY
  3. ASCORBIC ACID [Concomitant]
     Dosage: UNK, DAILY
  4. CHANTIX [Suspect]
     Indication: SMOKING CESSATION THERAPY
     Dosage: 1 MG, 2X/DAY
     Route: 048
     Dates: start: 20090101, end: 20090101
  5. AMLODIPINE [Concomitant]
     Indication: HYPERTENSION
     Dosage: 10 MG, DAILY
  6. VITAMIN B-12 [Concomitant]
     Dosage: UNK, DAILY
  7. MAGNESIUM [Concomitant]
     Dosage: UNK, DAILY

REACTIONS (1)
  - INCORRECT DOSE ADMINISTERED [None]
